FAERS Safety Report 8943426 (Version 1)
Quarter: 2012Q4

REPORT INFORMATION
  Report Type: 
  Country: US (occurrence: US)
  Receive Date: 20121204
  Receipt Date: 20121204
  Transmission Date: 20130627
  Serious: Yes (Hospitalization, Other)
  Sender: FDA-Public Use
  Company Number: US-UCBSA-070082

PATIENT
  Age: 15 Year
  Sex: Female
  Weight: 59.7 kg

DRUGS (17)
  1. CIMZIA [Suspect]
     Indication: CROHN^S DISEASE
     Route: 058
     Dates: start: 20121026
  2. ZANTAC [Concomitant]
  3. LORAZEPAM [Concomitant]
     Dosage: 1 MG PRN
  4. CLARATIN [Concomitant]
     Dosage: 10 MG PRN
  5. ZOFRAN [Concomitant]
     Dosage: Q 4 HOURS PRN
  6. PENTASA [Concomitant]
     Indication: CROHN^S DISEASE
  7. HYDROCODONE [Concomitant]
     Dosage: UNKNOWN DOSE PRN
  8. PROZAC [Concomitant]
     Dosage: 20 MG DAILY
  9. METAMUCIL [Concomitant]
     Dosage: UNKNOWN DOSE PRN
  10. ELAVIL [Concomitant]
     Dosage: 10 MG HS
     Route: 048
  11. METHOTREXATE [Concomitant]
     Dosage: 25 MG ONE TAB WEEKLY
  12. FOLIC ACID [Concomitant]
     Dosage: I MG DAY
  13. HUMIRA [Concomitant]
     Dosage: NIGHTLY
  14. EMLA CREAM [Concomitant]
     Dosage: PRIOR TO CIMZIA INJECTIONS
     Route: 061
  15. PREDNISONE [Concomitant]
     Dosage: 10 MG PRIOR TO CIMZIA
  16. BENADRYL [Concomitant]
     Dosage: 50 MG PRIOR TO CIMZIA INJECTION
     Route: 048
  17. EPI PEN [Concomitant]

REACTIONS (3)
  - Injection site mass [Not Recovered/Not Resolved]
  - Injection site discolouration [Not Recovered/Not Resolved]
  - Hypersensitivity [Recovered/Resolved]
